FAERS Safety Report 7262553-8 (Version None)
Quarter: 2011Q1

REPORT INFORMATION
  Report Type: 
  Country: None (occurrence: None)
  Receive Date: 20110130
  Receipt Date: 20101129
  Transmission Date: 20110831
  Serious: No
  Sender: FDA-Public Use
  Company Number: US-ABBOTT-10P-163-0688364-00

PATIENT
  Age: 70 Year
  Sex: Female

DRUGS (5)
  1. MULTIVITAMIN [Concomitant]
     Indication: PRODUCT USED FOR UNKNOWN INDICATION
  2. HUMIRA [Suspect]
     Indication: PSORIASIS
     Dates: start: 20101122, end: 20101122
  3. TRAVASTATIN [Concomitant]
     Indication: BLOOD CHOLESTEROL
  4. HUMIRA [Suspect]
     Dates: start: 20101129
  5. TRIAMTEREEN [Concomitant]
     Indication: BLOOD PRESSURE

REACTIONS (6)
  - JOINT INJURY [None]
  - EXCORIATION [None]
  - HAEMORRHAGE [None]
  - BALANCE DISORDER [None]
  - CONTUSION [None]
  - FALL [None]
